FAERS Safety Report 9125884 (Version 2)
Quarter: 2013Q1

REPORT INFORMATION
  Report Type: Spontaneous
  Country: JP (occurrence: JP)
  Receive Date: 20130228
  Receipt Date: 20130306
  Transmission Date: 20140127
  Serious: Yes (Other)
  Sender: FDA-Public Use
  Company Number: JP-009507513-1302JPN011713

PATIENT
  Age: 63 Year
  Sex: Female

DRUGS (5)
  1. GASTER [Suspect]
     Indication: GASTRITIS
     Dosage: 20 MG, UNK/DAY
     Route: 048
     Dates: start: 2008, end: 20130218
  2. EPADEL S [Concomitant]
     Dosage: UNK
     Route: 048
     Dates: start: 2008
  3. FLUITRAN [Concomitant]
     Dosage: UNK
     Route: 048
     Dates: start: 2008
  4. JANUVIA TABLETS 25MG [Concomitant]
     Dosage: UNK
     Route: 048
     Dates: start: 2008
  5. GLYCYRON [Concomitant]
     Dosage: UNK
     Route: 048
     Dates: start: 2008

REACTIONS (1)
  - Myopathy [Recovered/Resolved]
